FAERS Safety Report 9656536 (Version 1)
Quarter: 2013Q4

REPORT INFORMATION
  Report Type: Spontaneous
  Country: US (occurrence: None)
  Receive Date: 20131029
  Receipt Date: 20131029
  Transmission Date: 20140711
  Serious: Yes (Other)
  Sender: FDA-Public Use
  Company Number: None

PATIENT
  Sex: Male
  Weight: .86 kg

DRUGS (1)
  1. CHLORAPREP W/ TINT [Suspect]
     Indication: THERAPEUTIC PROCEDURE
     Dates: start: 20131014

REACTIONS (3)
  - Chemical injury [None]
  - Erythema [None]
  - Burns first degree [None]
